FAERS Safety Report 15155831 (Version 1)
Quarter: 2018Q3

REPORT INFORMATION
  Report Type: Spontaneous
  Country: GR (occurrence: GR)
  Receive Date: 20180717
  Receipt Date: 20180717
  Transmission Date: 20181010
  Serious: Yes (Other)
  Sender: FDA-Public Use
  Company Number: GR-US WORLDMEDS, LLC-STA_00018247

PATIENT
  Age: 62 Year
  Sex: Female

DRUGS (1)
  1. APOMORPHINE HYDROCHLORIDE [Suspect]
     Active Substance: APOMORPHINE HYDROCHLORIDE
     Indication: PARKINSON^S DISEASE
     Route: 058
     Dates: start: 20160414, end: 20160416

REACTIONS (1)
  - Subileus [Recovered/Resolved]

NARRATIVE: CASE EVENT DATE: 20160416
